FAERS Safety Report 9069474 (Version 1)
Quarter: 2013Q1

REPORT INFORMATION
  Report Type: Report from Study
  Country: US (occurrence: US)
  Receive Date: 20130131
  Receipt Date: 20130131
  Transmission Date: 20140127
  Serious: No
  Sender: FDA-Public Use
  Company Number: US-ABBOTT-12P-163-0991776-00

PATIENT
  Age: 49 Year
  Sex: Female

DRUGS (4)
  1. HUMIRA [Suspect]
     Indication: CROHN^S DISEASE
     Route: 058
     Dates: start: 20120912
  2. LEVOTHYROXIN [Concomitant]
     Indication: HYPOTHYROIDISM
     Route: 048
  3. PENTASA [Concomitant]
     Indication: CROHN^S DISEASE
  4. PERCOCET [Concomitant]
     Indication: PAIN
     Dosage: 1 AS NEEDED

REACTIONS (7)
  - Chills [Unknown]
  - Injection site pain [Not Recovered/Not Resolved]
  - Injection site pain [Recovered/Resolved]
  - Pyrexia [Unknown]
  - Peripheral coldness [Unknown]
  - Lethargy [Unknown]
  - Feeling hot [Unknown]
